FAERS Safety Report 9089507 (Version 1)
Quarter: 2013Q1

REPORT INFORMATION
  Report Type: Report from Study
  Country: US (occurrence: US)
  Receive Date: 20130201
  Receipt Date: 20130201
  Transmission Date: 20140127
  Serious: No
  Sender: FDA-Public Use
  Company Number: US-ABBOTT-12P-163-1019529-00

PATIENT
  Age: 39 Year
  Sex: Female

DRUGS (6)
  1. HUMIRA [Suspect]
     Indication: CROHN^S DISEASE
     Route: 058
     Dates: start: 20120704
  2. ATIVAN [Concomitant]
     Indication: INSOMNIA
  3. PERCOCET [Concomitant]
     Indication: PAIN
     Dosage: 10 MG/325 4 TIMES A DAY, AS NEEDED
  4. GEODON [Concomitant]
     Indication: INSOMNIA
  5. GEODON [Concomitant]
     Indication: ANGER
  6. PREDNISONE [Concomitant]
     Indication: CROHN^S DISEASE
     Dosage: 20 MG DAILY
     Dates: end: 201207

REACTIONS (2)
  - Injection site swelling [Not Recovered/Not Resolved]
  - Injection site pruritus [Not Recovered/Not Resolved]
